FAERS Safety Report 17515069 (Version 1)
Quarter: 2020Q1

REPORT INFORMATION
  Report Type: Report from Study
  Country: GB (occurrence: GB)
  Receive Date: 20200309
  Receipt Date: 20200309
  Transmission Date: 20200409
  Serious: Yes (Hospitalization)
  Sender: FDA-Public Use
  Company Number: GB-ROCHE-2306081

PATIENT
  Age: 70 Year
  Sex: Female
  Weight: 72 kg

DRUGS (10)
  1. DERMOVATE [Concomitant]
     Active Substance: CLOBETASOL
     Indication: RASH
     Route: 065
     Dates: start: 20190413
  2. NITROFURANTOIN. [Concomitant]
     Active Substance: NITROFURANTOIN
     Indication: URINARY TRACT INFECTION
     Route: 065
     Dates: start: 20190411
  3. METHYLPREDNISOLONE. [Concomitant]
     Active Substance: METHYLPREDNISOLONE
     Indication: HEPATITIS
     Route: 065
     Dates: start: 20190416
  4. ATEZOLIZUMAB. [Suspect]
     Active Substance: ATEZOLIZUMAB
     Indication: NEOPLASM
     Dosage: DATE OF MOST RECENT DOSE 840 MG OF ATEZOLIZUMAB PRIOR TO AE/SAE ONSET: 02/APR/2019
     Route: 041
     Dates: start: 20190402
  5. LOPERAMIDE [Concomitant]
     Active Substance: LOPERAMIDE
     Indication: DIARRHOEA
     Route: 065
     Dates: start: 20190415
  6. PREDNISOLONE. [Concomitant]
     Active Substance: PREDNISOLONE
     Indication: HEPATITIS
     Route: 065
     Dates: start: 20190423
  7. PARACETAMOL [Concomitant]
     Active Substance: ACETAMINOPHEN
     Indication: CHILLS
     Route: 065
     Dates: start: 20190415
  8. COBIMETINIB. [Suspect]
     Active Substance: COBIMETINIB
     Indication: NEOPLASM
     Dosage: DATE OF MOST RECENT DOSE 60 MG OF COBIMETINIB PRIOR TO AE ONSET: 15/APR/2019
     Route: 048
     Dates: start: 20190402
  9. PANTOPRAZOLE [Concomitant]
     Active Substance: PANTOPRAZOLE
     Route: 065
     Dates: start: 20190416
  10. RANITIDINE. [Concomitant]
     Active Substance: RANITIDINE
     Route: 065
     Dates: start: 20190423

REACTIONS (2)
  - Immune-mediated hepatitis [Recovered/Resolved]
  - Sepsis [Not Recovered/Not Resolved]

NARRATIVE: CASE EVENT DATE: 20190416
